FAERS Safety Report 15137500 (Version 2)
Quarter: 2018Q3

REPORT INFORMATION
  Report Type: Spontaneous
  Country: CH (occurrence: CH)
  Receive Date: 20180712
  Receipt Date: 20180719
  Transmission Date: 20181010
  Serious: Yes (Other)
  Sender: FDA-Public Use
  Company Number: CH-GILEAD-2018-0349371

PATIENT
  Age: 58 Year
  Sex: Male

DRUGS (13)
  1. DESCOVY [Suspect]
     Active Substance: EMTRICITABINE\TENOFOVIR ALAFENAMIDE FUMARATE
     Indication: PRODUCT USED FOR UNKNOWN INDICATION
     Dosage: 1 DF, QD
     Route: 048
     Dates: start: 2017
  2. ROSUVASTATIN. [Concomitant]
     Active Substance: ROSUVASTATIN
     Dates: start: 2018
  3. CANDESARTAN. [Concomitant]
     Active Substance: CANDESARTAN
     Dates: start: 2018
  4. DAFALGAN [Concomitant]
     Active Substance: ACETAMINOPHEN
     Dosage: AS NECESSARY
  5. TIVICAY [Concomitant]
     Active Substance: DOLUTEGRAVIR SODIUM
     Dates: start: 2014
  6. ASPIRIN CARDIO [Concomitant]
     Active Substance: ASPIRIN
     Dates: start: 2018
  7. VITAMINE A [Concomitant]
     Active Substance: RETINOL
     Dosage: AS NECESSARY
  8. VISCOTEARS [Concomitant]
     Active Substance: CARBOMER
     Dosage: AS NECESSARY
  9. DIAMICRON [Concomitant]
     Active Substance: GLICLAZIDE
     Dates: start: 2017
  10. VI?DE 3 [Concomitant]
     Active Substance: CHOLECALCIFEROL
     Dates: start: 2017
  11. JANUMET [Concomitant]
     Active Substance: METFORMIN HYDROCHLORIDE\SITAGLIPTIN PHOSPHATE
  12. CIPRALEX [Concomitant]
     Active Substance: ESCITALOPRAM OXALATE
     Dates: start: 2011
  13. METOPROLOL. [Concomitant]
     Active Substance: METOPROLOL
     Dates: start: 2018

REACTIONS (1)
  - Retinal toxicity [Not Recovered/Not Resolved]

NARRATIVE: CASE EVENT DATE: 201806
